FAERS Safety Report 5657699-1 (Version None)
Quarter: 2008Q1

REPORT INFORMATION
  Report Type: 
  Country: None (occurrence: None)
  Receive Date: 20080310
  Receipt Date: 20080307
  Transmission Date: 20080703
  Serious: Yes (Life-Threatening)
  Sender: FDA-Public Use
  Company Number: AU-BOEHRINGER INGELHEIM GMBH, GERMANY-2008-BP-03476AU

PATIENT
  Sex: Male

DRUGS (1)
  1. MOBIC [Suspect]
     Indication: MUSCULOSKELETAL PAIN
     Route: 048
     Dates: start: 20071005, end: 20071012

REACTIONS (2)
  - HAEMATEMESIS [None]
  - RECTAL HAEMORRHAGE [None]
